FAERS Safety Report 5714211-6 (Version None)
Quarter: 2008Q2

REPORT INFORMATION
  Report Type: 
  Country: None (occurrence: None)
  Receive Date: 20080423
  Receipt Date: 20080118
  Transmission Date: 20081010
  Serious: No
  Sender: FDA-Public Use
  Company Number: US-KINGPHARMUSA00001-K200800165

PATIENT

DRUGS (1)
  1. SKELAXIN [Suspect]
     Indication: MUSCLE RELAXANT THERAPY
     Dosage: 800 MG, PRN
     Route: 048
     Dates: start: 20020101, end: 20070101

REACTIONS (5)
  - BLISTER [None]
  - PRURITUS [None]
  - RASH [None]
  - RASH PRURITIC [None]
  - URTICARIA [None]
